FAERS Safety Report 8658033 (Version 3)
Quarter: 2013Q1

REPORT INFORMATION
  Report Type: Spontaneous
  Country: GR (occurrence: GR)
  Receive Date: 20120710
  Receipt Date: 20130306
  Transmission Date: 20140127
  Serious: Yes (Other)
  Sender: FDA-Public Use
  Company Number: GR-AMGEN-GRCSP2012037590

PATIENT
  Age: 60 Year
  Sex: Female

DRUGS (1)
  1. PROLIA [Suspect]
     Indication: OSTEOPOROSIS
     Dosage: 60 MG, Q6MO

REACTIONS (4)
  - Tooth disorder [Recovered/Resolved]
  - Teeth brittle [Recovered/Resolved]
  - Tooth extraction [Recovered/Resolved]
  - Oral infection [Recovered/Resolved]
